FAERS Safety Report 7232777-4 (Version None)
Quarter: 2011Q1

REPORT INFORMATION
  Report Type: 
  Country: None (occurrence: None)
  Receive Date: 20110106
  Receipt Date: 20110104
  Transmission Date: 20110831
  Serious: Yes (Other)
  Sender: FDA-Public Use
  Company Number: 2010SP034161

PATIENT
  Age: 45 Year
  Sex: Male
  Weight: 76 kg

DRUGS (2)
  1. TEMODAL [Suspect]
     Indication: GLIOBLASTOMA
     Dosage: 75 MG/M2; ; PO
     Route: 048
     Dates: start: 20100427, end: 20100607
  2. TEMODAL [Suspect]
     Indication: GLIOBLASTOMA
     Dosage: 75 MG/M2; ; PO
     Route: 048
     Dates: start: 20100801

REACTIONS (4)
  - CYTOLYTIC HEPATITIS [None]
  - ASTHENIA [None]
  - PRURITUS [None]
  - CHROMATURIA [None]
